FAERS Safety Report 6364983-5 (Version None)
Quarter: 2009Q3

REPORT INFORMATION
  Report Type: 
  Country: None (occurrence: None)
  Receive Date: 20090919
  Receipt Date: 20090805
  Transmission Date: 20100115
  Serious: No
  Sender: FDA-Public Use
  Company Number: US-ABBOTT-09P-163-0589522-00

PATIENT
  Sex: Female
  Weight: 72.64 kg

DRUGS (2)
  1. HUMIRA [Suspect]
     Indication: PSORIATIC ARTHROPATHY
     Dates: start: 20080117, end: 20090301
  2. HUMIRA [Suspect]
     Dates: start: 20090601

REACTIONS (4)
  - DYSPNOEA [None]
  - INJECTION SITE IRRITATION [None]
  - JOINT SWELLING [None]
  - WEIGHT INCREASED [None]
